FAERS Safety Report 4953276-6 (Version None)
Quarter: 2006Q1

REPORT INFORMATION
  Report Type: 
  Country: None (occurrence: None)
  Receive Date: 20060324
  Receipt Date: 20050909
  Transmission Date: 20060701
  Serious: Yes (Hospitalization)
  Sender: FDA-Public Use
  Company Number: US-MERCK-0509USA01444

PATIENT
  Age: 58 Year
  Sex: Male
  Weight: 75 kg

DRUGS (24)
  1. VIOXX [Suspect]
     Indication: BACK PAIN
     Route: 048
     Dates: start: 19990101, end: 20040901
  2. VIOXX [Suspect]
     Indication: INFLAMMATION
     Route: 048
     Dates: start: 19990101, end: 20040901
  3. PRILOSEC [Concomitant]
     Route: 065
  4. CLARITIN [Concomitant]
     Route: 065
  5. LIPITOR [Concomitant]
     Route: 065
  6. LAMISIL [Concomitant]
     Route: 065
  7. BIAXIN [Concomitant]
     Route: 065
  8. FOLTX [Concomitant]
     Route: 065
  9. METOPROLOL [Concomitant]
     Route: 065
  10. DARVOCET [Concomitant]
     Route: 065
  11. NIASPAN [Concomitant]
     Route: 065
  12. PERIDEX [Concomitant]
     Route: 065
  13. TRAMADOL HYDROCHLORIDE [Concomitant]
     Route: 065
  14. FOLBEE [Concomitant]
     Route: 065
  15. DYNABAC [Concomitant]
     Route: 065
  16. ZITHROMAX [Concomitant]
     Route: 065
  17. AUGMENTIN '125' [Concomitant]
     Route: 065
  18. SPORANOX [Concomitant]
     Route: 065
  19. PLAVIX [Concomitant]
     Route: 065
  20. NITROGLYCERIN [Concomitant]
     Route: 065
  21. LASIX [Concomitant]
     Route: 065
  22. FLONASE [Concomitant]
     Route: 065
  23. OMNICEF [Concomitant]
     Route: 065
  24. SELDANE [Concomitant]
     Route: 065

REACTIONS (7)
  - CHEST PAIN [None]
  - CORONARY ARTERY DISEASE [None]
  - DYSPEPSIA [None]
  - DYSPNOEA [None]
  - HYPERTENSION [None]
  - MYOCARDIAL INFARCTION [None]
  - UPPER RESPIRATORY TRACT INFECTION [None]
